FAERS Safety Report 9511757 (Version 3)
Quarter: 2014Q1

REPORT INFORMATION
  Report Type: Report from Study
  Country: CA (occurrence: CA)
  Receive Date: 20130910
  Receipt Date: 20140116
  Transmission Date: 20141002
  Serious: Yes (Death, Hospitalization)
  Sender: FDA-Public Use
  Company Number: CA-ASTRAZENECA-2013SE61895

PATIENT
  Age: 79 Year
  Sex: Male

DRUGS (1)
  1. ZOLADEX [Suspect]
     Indication: PROSTATE CANCER
     Route: 058
     Dates: start: 20130215

REACTIONS (2)
  - Death [Fatal]
  - General physical health deterioration [Not Recovered/Not Resolved]
